FAERS Safety Report 25910517 (Version 1)
Quarter: 2025Q4

REPORT INFORMATION
  Report Type: Spontaneous
  Country: EU (occurrence: EU)
  Receive Date: 20251013
  Receipt Date: 20251013
  Transmission Date: 20260118
  Serious: Yes (Hospitalization, Other)
  Sender: BRISTOL-MYERS SQUIBB COMPANY
  Company Number: None

PATIENT
  Age: 51 Year
  Sex: Male
  Weight: 82 kg

DRUGS (2)
  1. NELVUTAMIG [Suspect]
     Active Substance: NELVUTAMIG
     Indication: Malignant melanoma
     Dosage: 3 MG/KG, EXPECTED FREQUENCY Q21, REAL ADMINISTRATION OCCURRED AT Q28 APPROXIMATELY
     Dates: start: 20250512, end: 20250813
  2. NIVOLUMAB [Suspect]
     Active Substance: NIVOLUMAB
     Indication: Malignant melanoma
     Dosage: 1MG/KG; EXPECTED FREQUENCY Q21, ACTUAL ADMINISTRATION OCCURRED APPROXIMATELY Q28
     Dates: start: 20250512, end: 20250813

REACTIONS (2)
  - Immunotoxicity [Recovering/Resolving]
  - Eosinophilia [Unknown]

NARRATIVE: CASE EVENT DATE: 20250602
